FAERS Safety Report 13064720 (Version 3)
Quarter: 2019Q4

REPORT INFORMATION
  Report Type: Spontaneous
  Country: US (occurrence: US)
  Receive Date: 20161227
  Receipt Date: 20191107
  Transmission Date: 20200122
  Serious: Yes (Other)
  Sender: FDA-Public Use
  Company Number: US-PFIZER INC-2016596209

PATIENT
  Age: 65 Year
  Sex: Male

DRUGS (27)
  1. CIALIS [Suspect]
     Active Substance: TADALAFIL
     Indication: ERECTILE DYSFUNCTION
     Dosage: 20 MG, WEEKLY (ONCE A WEEK)
     Route: 048
     Dates: start: 200712, end: 200810
  2. CIALIS [Suspect]
     Active Substance: TADALAFIL
     Dosage: UNK, (30 SAMPLES)
     Route: 048
     Dates: start: 20120917
  3. LEVITRA [Concomitant]
     Active Substance: VARDENAFIL HYDROCHLORIDE
     Indication: ERECTILE DYSFUNCTION
     Dosage: 10 MG, WEEKLY (ONCE A WEEK)
     Dates: start: 200602, end: 200711
  4. BUPROPION. [Concomitant]
     Active Substance: BUPROPION
     Indication: ANXIETY
     Dosage: UNK
     Dates: start: 200606
  5. BUPROPION. [Concomitant]
     Active Substance: BUPROPION
     Indication: DEPRESSION
  6. REQUIP [Concomitant]
     Active Substance: ROPINIROLE HYDROCHLORIDE
     Indication: RESTLESS LEGS SYNDROME
     Dosage: UNK
     Dates: start: 200907, end: 201406
  7. VIAGRA [Suspect]
     Active Substance: SILDENAFIL CITRATE
     Dosage: 100 MG, WEEKLY (ONCE A WEEK)
     Route: 048
     Dates: start: 201111, end: 201706
  8. CIALIS [Suspect]
     Active Substance: TADALAFIL
     Dosage: 20 MG TAB, WEEKLY (ONE A WEEK)
     Route: 048
     Dates: start: 200912, end: 201009
  9. TESTOSTERONE. [Concomitant]
     Active Substance: TESTOSTERONE
     Indication: HYPOGONADISM
     Dosage: UNK
     Dates: start: 200605
  10. VIAGRA [Suspect]
     Active Substance: SILDENAFIL CITRATE
     Indication: ERECTILE DYSFUNCTION
     Dosage: 100 MG, WEEKLY (ONCE A WEEK)
     Route: 048
     Dates: start: 1998, end: 200904
  11. VIAGRA [Suspect]
     Active Substance: SILDENAFIL CITRATE
     Dosage: UNK
     Route: 048
     Dates: start: 200810, end: 201508
  12. CIALIS [Suspect]
     Active Substance: TADALAFIL
     Dosage: 5 MG TAB, (EVERY OTHER DAY)
     Route: 048
     Dates: end: 201210
  13. VIAGRA [Suspect]
     Active Substance: SILDENAFIL CITRATE
     Dosage: 50 MG TAB, WEEKLY (ONCE A WEEK)
     Route: 048
     Dates: start: 201010, end: 201109
  14. CIALIS [Suspect]
     Active Substance: TADALAFIL
     Dosage: 20 MG, DAILY
     Route: 048
     Dates: start: 201403, end: 201404
  15. LEVITRA [Concomitant]
     Active Substance: VARDENAFIL HYDROCHLORIDE
     Dosage: 10 MG, WEEKLY (ONCE A WEEK)
     Dates: start: 200602, end: 201111
  16. EDEX [Concomitant]
     Active Substance: ALPROSTADIL
     Indication: ERECTILE DYSFUNCTION
     Dosage: 20 UG, WEEKLY (ONCE A WEEK WHEN TRAVELING)
     Dates: start: 20150831
  17. OMEPRAZOLE. [Concomitant]
     Active Substance: OMEPRAZOLE
     Indication: GASTROOESOPHAGEAL REFLUX DISEASE
     Dosage: UNK
     Dates: start: 200904, end: 201812
  18. CIALIS [Suspect]
     Active Substance: TADALAFIL
     Dosage: 20 MG, WEEKLY (ONCE A WEEK)
     Route: 048
     Dates: start: 200904, end: 200912
  19. TRAZODONE [Concomitant]
     Active Substance: TRAZODONE HYDROCHLORIDE
     Indication: INSOMNIA
     Dosage: UNK
     Dates: start: 200706
  20. SYNTHROID [Concomitant]
     Active Substance: LEVOTHYROXINE SODIUM
     Indication: HYPOTHYROIDISM
     Dosage: UNK
     Dates: start: 200605
  21. LISINOPRIL. [Concomitant]
     Active Substance: LISINOPRIL
     Indication: HYPERTENSION
     Dosage: UNK
     Dates: start: 201304, end: 201604
  22. CIALIS [Suspect]
     Active Substance: TADALAFIL
     Dosage: 5 MG TAB, DAILY
     Route: 048
     Dates: start: 20120917
  23. TRIMEX [Concomitant]
     Indication: ERECTILE DYSFUNCTION
     Dosage: 0.2 TO 0.6 CC, AS NEEDED
     Dates: start: 20121029
  24. BIMIX [Concomitant]
     Indication: ERECTILE DYSFUNCTION
     Dosage: 5 TO 10 MCG, AS NEEDED
     Dates: start: 20151216
  25. CORTEF [Concomitant]
     Active Substance: HYDROCORTISONE
     Indication: ADRENAL DISORDER
     Dosage: UNK
     Dates: start: 201301
  26. SINGULAIR [Concomitant]
     Active Substance: MONTELUKAST SODIUM
     Indication: MULTIPLE ALLERGIES
     Dosage: UNK
     Dates: start: 201305
  27. ALBUTEROL. [Concomitant]
     Active Substance: ALBUTEROL
     Indication: ASTHMA
     Dosage: UNK
     Dates: start: 201404

REACTIONS (1)
  - Malignant melanoma [Unknown]

NARRATIVE: CASE EVENT DATE: 20150112
